FAERS Safety Report 4916833-9 (Version None)
Quarter: 2006Q1

REPORT INFORMATION
  Report Type: 
  Country: None (occurrence: None)
  Receive Date: 20060216
  Receipt Date: 20060216
  Transmission Date: 20060701
  Serious: Yes (Hospitalization)
  Sender: FDA-Public Use
  Company Number: None

PATIENT
  Sex: Male

DRUGS (17)
  1. FUROSEMIDE [Suspect]
     Indication: CARDIAC FAILURE
     Dosage: 80 MG/40 MG AM/PM PO
     Route: 048
     Dates: start: 20051107, end: 20051116
  2. FLECAINIDE ACETATE [Concomitant]
  3. LISINOPRIL [Concomitant]
  4. METOPROLOL XL [Concomitant]
  5. SPIRONOLCTONE [Concomitant]
  6. LEVETIRACETAM [Concomitant]
  7. METOLAZONE [Concomitant]
  8. EZETIMIBE [Concomitant]
  9. ATORVASTATIN CALCIUM [Concomitant]
  10. GLYBURIDE [Concomitant]
  11. LEVOTHYROXINE SODIUM [Concomitant]
  12. WARFARIN SODIUM [Concomitant]
  13. ASPIRIN [Concomitant]
  14. SIMETHICONE [Concomitant]
  15. NACL NASAL [Concomitant]
  16. NTG SL [Concomitant]
  17. HEMORRHOIDAL [Concomitant]

REACTIONS (1)
  - RENAL FAILURE ACUTE [None]
